FAERS Safety Report 4614355-6 (Version None)
Quarter: 2005Q2

REPORT INFORMATION
  Report Type: 
  Country: None (occurrence: None)
  Receive Date: 20050308
  Receipt Date: 20041108
  Transmission Date: 20051028
  Serious: Yes (Other)
  Sender: FDA-Public Use
  Company Number: 2004UW23006

PATIENT
  Age: 50 Year
  Sex: Female
  Weight: 61.234 kg

DRUGS (2)
  1. CRESTOR [Suspect]
     Indication: BLOOD CHOLESTEROL INCREASED
     Dosage: 10 MG HS PO
     Route: 048
  2. GEMFIBROZIL [Suspect]

REACTIONS (8)
  - CONFUSIONAL STATE [None]
  - DIZZINESS [None]
  - FATIGUE [None]
  - HEADACHE [None]
  - HYPOAESTHESIA [None]
  - RASH [None]
  - SPEECH DISORDER [None]
  - VOMITING [None]
